FAERS Safety Report 6676768-0 (Version None)
Quarter: 2010Q2

REPORT INFORMATION
  Report Type: 
  Country: None (occurrence: None)
  Receive Date: 20100412
  Receipt Date: 20100329
  Transmission Date: 20101027
  Serious: Yes (Other)
  Sender: FDA-Public Use
  Company Number: DE-ROCHE-694012

PATIENT
  Age: 45 Year
  Sex: Female

DRUGS (3)
  1. PEG-INTRON [Suspect]
     Dosage: TOTAL DURATION: 48 WEEKS (INCLUDING DOSE REDUCTION)
     Route: 058
  2. PEG-INTRON [Suspect]
     Dosage: GRADUALLY REDUCED
     Route: 058
  3. RIBAVIRIN [Suspect]
     Route: 065

REACTIONS (1)
  - COELIAC DISEASE [None]
